FAERS Safety Report 5648257-3 (Version None)
Quarter: 2008Q1

REPORT INFORMATION
  Report Type: 
  Country: None (occurrence: None)
  Receive Date: 20080304
  Receipt Date: 20080228
  Transmission Date: 20080703
  Serious: Yes (Hospitalization, Other)
  Sender: FDA-Public Use
  Company Number: US-BRISTOL-MYERS SQUIBB COMPANY-14092373

PATIENT
  Age: 83 Year
  Sex: Male

DRUGS (7)
  1. GATIFLOXACIN [Suspect]
  2. CARBIDOPA AND LEVODOPA [Suspect]
  3. METFORMIN HCL [Suspect]
  4. ASPIRIN [Suspect]
  5. GLYBURIDE [Suspect]
  6. LEVOTHYROXINE SODIUM [Suspect]
  7. SIMVASTATIN [Suspect]

REACTIONS (1)
  - HYPOGLYCAEMIA [None]
